FAERS Safety Report 20011164 (Version 2)
Quarter: 2021Q4

REPORT INFORMATION
  Report Type: Spontaneous
  Country: CL (occurrence: CL)
  Receive Date: 20211028
  Receipt Date: 20211112
  Transmission Date: 20220304
  Serious: Yes (Other)
  Sender: FDA-Public Use
  Company Number: CL-NALPROPION PHARMACEUTICALS INC.-2021-014293

PATIENT

DRUGS (3)
  1. CONTRAVE [Suspect]
     Active Substance: BUPROPION HYDROCHLORIDE\NALTREXONE HYDROCHLORIDE
     Indication: Obesity
     Dosage: FIRST WEEK (1 DF,8 AM WITH BREAKFAST)
     Route: 048
     Dates: start: 20210920, end: 202109
  2. CONTRAVE [Suspect]
     Active Substance: BUPROPION HYDROCHLORIDE\NALTREXONE HYDROCHLORIDE
     Dosage: SECOND WEEK (1 DF, ONE AT 8:00 AM AND ONE AT 8:00 PM)
     Route: 048
     Dates: start: 202109, end: 202110
  3. CONTRAVE [Suspect]
     Active Substance: BUPROPION HYDROCHLORIDE\NALTREXONE HYDROCHLORIDE
     Dosage: THIRD WEEK (2 DF, 2 TABS AT 8 AM)
     Route: 048
     Dates: start: 202110, end: 20211011

REACTIONS (3)
  - Major depression [Unknown]
  - Feeling abnormal [Unknown]
  - Intentional product use issue [Unknown]

NARRATIVE: CASE EVENT DATE: 20211001
